FAERS Safety Report 9800660 (Version 5)
Quarter: 2014Q2

REPORT INFORMATION
  Report Type: Spontaneous
  Country: DE (occurrence: DE)
  Receive Date: 20140107
  Receipt Date: 20140620
  Transmission Date: 20141212
  Serious: Yes (Death, Hospitalization)
  Sender: FDA-Public Use
  Company Number: DE-BEH-2014039890

PATIENT
  Age: 53 Year
  Sex: Male
  Weight: 65 kg

DRUGS (10)
  1. HAEMATE [Suspect]
     Indication: FACTOR VIII DEFICIENCY
     Route: 042
     Dates: start: 20131103
  2. HAEMATE [Suspect]
     Indication: GASTROINTESTINAL HAEMORRHAGE
     Route: 042
     Dates: start: 20131103
  3. RED BLOOD CELL CONCENTRATE [Concomitant]
  4. RED BLOOD CELL CONCENTRATE [Concomitant]
  5. FRESH FROZEN PLASMA [Concomitant]
  6. REFACTO [Concomitant]
  7. PPSB [Concomitant]
  8. VITAMIN K [Concomitant]
  9. TRANEXAMIC ACID [Concomitant]
  10. OCTREOTIDE [Concomitant]

REACTIONS (10)
  - Shock haemorrhagic [Fatal]
  - Gastrointestinal haemorrhage [Fatal]
  - Mucosal haemorrhage [Fatal]
  - Acute respiratory distress syndrome [Recovering/Resolving]
  - Pneumocystis jirovecii pneumonia [Recovering/Resolving]
  - Pneumonia aspiration [Recovering/Resolving]
  - Transfusion-related acute lung injury [Recovering/Resolving]
  - Acute hepatic failure [Not Recovered/Not Resolved]
  - Drug-induced liver injury [Not Recovered/Not Resolved]
  - Hepatorenal syndrome [Not Recovered/Not Resolved]
